FAERS Safety Report 23666715 (Version 1)
Quarter: 2024Q1

REPORT INFORMATION
  Report Type: Spontaneous
  Country: CN (occurrence: CN)
  Receive Date: 20240325
  Receipt Date: 20240325
  Transmission Date: 20240410
  Serious: Yes (Other)
  Sender: FDA-Public Use
  Company Number: CN-TWI PHARMACEUTICAL, INC-2024SCTW000048

PATIENT

DRUGS (7)
  1. BUPROPION HYDROCHLORIDE XL [Suspect]
     Active Substance: BUPROPION HYDROCHLORIDE
     Indication: Antidepressant therapy
     Dosage: 150 MG, DAILY
     Route: 065
     Dates: start: 20220714
  2. BUPROPION HYDROCHLORIDE XL [Suspect]
     Active Substance: BUPROPION HYDROCHLORIDE
     Dosage: 300 MG, BID (150 MG IN THE MORNING AND 150 MG IN THE AFTERNOON)
     Route: 065
     Dates: start: 20220719
  3. PAROXETINE [Suspect]
     Active Substance: PAROXETINE
     Indication: Depression
     Dosage: 20 MG, DAILY
     Route: 065
     Dates: start: 2015
  4. PAROXETINE [Suspect]
     Active Substance: PAROXETINE
     Dosage: 40 MG, DAILY
     Route: 065
     Dates: start: 202205
  5. QUETIAPINE [Suspect]
     Active Substance: QUETIAPINE
     Indication: Depression
     Dosage: 50 MG, UNKNOWN
     Route: 048
     Dates: start: 202207
  6. CANDESARTAN [Concomitant]
     Active Substance: CANDESARTAN
     Indication: Hypertension
     Dosage: 4 MG, DAILY
     Route: 065
  7. ALPRAZOLAM [Concomitant]
     Active Substance: ALPRAZOLAM
     Indication: Depression
     Dosage: 0.4 MG, DAILY
     Route: 065
     Dates: start: 202205

REACTIONS (1)
  - Serotonin syndrome [Recovered/Resolved]

NARRATIVE: CASE EVENT DATE: 20220714
